FAERS Safety Report 10640329 (Version 2)
Quarter: 2016Q1

REPORT INFORMATION
  Report Type: Spontaneous
  Country: US (occurrence: US)
  Receive Date: 20141209
  Receipt Date: 20160126
  Transmission Date: 20160525
  Serious: Yes (Life-Threatening, Other)
  Sender: FDA-Public Use
  Company Number: US-ELI_LILLY_AND_COMPANY-US201412001382

PATIENT
  Sex: Female

DRUGS (3)
  1. CYMBALTA [Suspect]
     Active Substance: DULOXETINE HYDROCHLORIDE
     Indication: DEPRESSION
     Dosage: UNK, UNKNOWN
     Route: 048
     Dates: start: 201208, end: 201407
  2. CYMBALTA [Suspect]
     Active Substance: DULOXETINE HYDROCHLORIDE
     Indication: PAIN
  3. CYMBALTA [Suspect]
     Active Substance: DULOXETINE HYDROCHLORIDE
     Indication: FIBROMYALGIA

REACTIONS (10)
  - Nausea [Unknown]
  - Vision blurred [Unknown]
  - Sleep disorder [Unknown]
  - Mood altered [Unknown]
  - Drug withdrawal syndrome [Unknown]
  - Headache [Unknown]
  - Vertigo [Unknown]
  - Palpitations [Unknown]
  - Paraesthesia [Unknown]
  - Dizziness [Unknown]
